FAERS Safety Report 23721546 (Version 1)
Quarter: 2024Q2

REPORT INFORMATION
  Report Type: Other
  Country: GB (occurrence: GB)
  Receive Date: 20240409
  Receipt Date: 20240409
  Transmission Date: 20240716
  Serious: Yes (Other)
  Sender: FDA-Public Use
  Company Number: GB-LAURUS LABS LIMITED-2024LAU000030

PATIENT
  Sex: Female

DRUGS (2)
  1. METFORMIN [Suspect]
     Active Substance: METFORMIN HYDROCHLORIDE
     Indication: Type 2 diabetes mellitus
     Dosage: 3000 MILLIGRAM A DAY
     Route: 065
  2. METFORMIN [Suspect]
     Active Substance: METFORMIN HYDROCHLORIDE
     Dosage: 1500 MILLIGRAM
     Route: 065

REACTIONS (15)
  - Anxiety [Unknown]
  - Blood glucose increased [Recovered/Resolved]
  - Carpal tunnel syndrome [Unknown]
  - Decreased appetite [Unknown]
  - Hypertension [Recovered/Resolved]
  - Pain [Recovered/Resolved]
  - Photosensitivity reaction [Unknown]
  - Temperature intolerance [Unknown]
  - Weight decreased [Unknown]
  - Fatigue [Unknown]
  - Hyperlactacidaemia [Unknown]
  - Benign neoplasm [Unknown]
  - Graves^ disease [Unknown]
  - Hypercalcaemia [Unknown]
  - Hyperthyroidism [Unknown]
